FAERS Safety Report 11535657 (Version 1)
Quarter: 2015Q3

REPORT INFORMATION
  Report Type: Spontaneous
  Country: US (occurrence: US)
  Receive Date: 20150922
  Receipt Date: 20150922
  Transmission Date: 20151125
  Serious: Yes (Death)
  Sender: FDA-Public Use
  Company Number: US-SUNOVION-2015SUN000280

PATIENT
  Sex: Female

DRUGS (1)
  1. BROVANA [Suspect]
     Active Substance: ARFORMOTEROL TARTRATE
     Dosage: 15MCG/2ML, UNK
     Route: 055

REACTIONS (3)
  - Aphonia [Unknown]
  - Dysphonia [Unknown]
  - Staphylococcal infection [Fatal]
